FAERS Safety Report 25332374 (Version 1)
Quarter: 2025Q2

REPORT INFORMATION
  Report Type: Spontaneous
  Country: FR (occurrence: FR)
  Receive Date: 20250519
  Receipt Date: 20250519
  Transmission Date: 20250716
  Serious: Yes (Hospitalization)
  Sender: MERCK SHARP & DOHME LLC
  Company Number: None

PATIENT
  Age: 63 Year
  Sex: Male
  Weight: 87.8 kg

DRUGS (2)
  1. KEYTRUDA [Suspect]
     Active Substance: PEMBROLIZUMAB
     Indication: Renal cancer
     Route: 042
     Dates: start: 20250206, end: 20250320
  2. INLYTA [Suspect]
     Active Substance: AXITINIB
     Indication: Renal cancer
     Dosage: STRENGTH: 5 MG
     Route: 048
     Dates: start: 20250129

REACTIONS (3)
  - Hepatic cytolysis [Recovered/Resolved with Sequelae]
  - Cholestasis [Recovering/Resolving]
  - Cholecystitis [Recovered/Resolved]

NARRATIVE: CASE EVENT DATE: 20250320
